FAERS Safety Report 9822603 (Version 1)
Quarter: 2014Q1

REPORT INFORMATION
  Report Type: Spontaneous
  Country: US (occurrence: US)
  Receive Date: 20140116
  Receipt Date: 20140116
  Transmission Date: 20141002
  Serious: Yes (Hospitalization)
  Sender: FDA-Public Use
  Company Number: US-BIOGENIDEC-2014BI001735

PATIENT
  Age: 52 Year
  Sex: Female

DRUGS (10)
  1. TECFIDERA [Suspect]
     Indication: MULTIPLE SCLEROSIS
     Route: 048
     Dates: start: 20131018
  2. AMITIZA [Concomitant]
  3. ATENOLOL [Concomitant]
  4. BACLOFEN [Concomitant]
  5. GABAPENTIN [Concomitant]
  6. KLOR-CON [Concomitant]
  7. NORCO [Concomitant]
  8. OPANA ER [Concomitant]
  9. RANITIDINE HCL [Concomitant]
  10. TIZANIDINE HCL [Concomitant]

REACTIONS (1)
  - Appendicectomy [Unknown]
